FAERS Safety Report 5718027-6 (Version None)
Quarter: 2008Q2

REPORT INFORMATION
  Report Type: 
  Country: None (occurrence: None)
  Receive Date: 20080425
  Receipt Date: 20080424
  Transmission Date: 20081010
  Serious: Yes (Other)
  Sender: FDA-Public Use
  Company Number: D0057074A

PATIENT
  Age: 80 Year
  Sex: Female

DRUGS (1)
  1. CEFUROXIME [Suspect]
     Indication: BRONCHITIS
     Dosage: 500MG TWICE PER DAY
     Route: 048

REACTIONS (3)
  - CIRCULATORY COLLAPSE [None]
  - DEHYDRATION [None]
  - DIARRHOEA [None]
